FAERS Safety Report 5003513-7 (Version None)
Quarter: 2006Q2

REPORT INFORMATION
  Report Type: 
  Country: None (occurrence: None)
  Receive Date: 20060516
  Receipt Date: 20051213
  Transmission Date: 20061013
  Serious: Yes (Death, Hospitalization)
  Sender: FDA-Public Use
  Company Number: JP-GILEAD-2005-0009018

PATIENT
  Sex: Male

DRUGS (8)
  1. HEPSERA [Suspect]
     Indication: HEPATITIS B
     Route: 048
     Dates: start: 20041112
  2. HEPSERA [Suspect]
     Indication: HEPATIC CIRRHOSIS
  3. ZEFFIX [Suspect]
     Indication: HEPATIC CIRRHOSIS
     Route: 048
     Dates: start: 20020101
  4. DOMPERIDONE [Concomitant]
  5. MOSAPRIDE CITRATE [Concomitant]
  6. DIMETHICONE [Concomitant]
  7. SPIRONOLACTONE [Concomitant]
  8. BROTIZOLAM [Concomitant]

REACTIONS (2)
  - ENTEROCOLITIS VIRAL [None]
  - HEPATIC FAILURE [None]
